FAERS Safety Report 8371843-7 (Version None)
Quarter: 2012Q2

REPORT INFORMATION
  Report Type: 
  Country: None (occurrence: None)
  Receive Date: 20120518
  Receipt Date: 20120514
  Transmission Date: 20120825
  Serious: Yes (Hospitalization, Other)
  Sender: FDA-Public Use
  Company Number: US-ROCHE-1040341

PATIENT
  Sex: Female
  Weight: 44.038 kg

DRUGS (1)
  1. ACCUTANE [Suspect]
     Indication: ACNE
     Dates: start: 19840101, end: 19860101

REACTIONS (10)
  - ANXIETY [None]
  - INJURY [None]
  - STRESS [None]
  - ANASTOMOTIC ULCER [None]
  - GASTRITIS [None]
  - COLONIC STENOSIS [None]
  - CROHN'S DISEASE [None]
  - OESOPHAGEAL ULCER [None]
  - DEPRESSION [None]
  - HAEMORRHOIDS [None]
